FAERS Safety Report 18597755 (Version 3)
Quarter: 2025Q2

REPORT INFORMATION
  Report Type: Spontaneous
  Country: US (occurrence: US)
  Receive Date: 20201209
  Receipt Date: 20250403
  Transmission Date: 20250716
  Serious: No
  Sender: MERCK SHARP AND DOHME
  Company Number: US-009507513-2012USA001588

PATIENT
  Sex: Female

DRUGS (7)
  1. JANUMET [Suspect]
     Active Substance: METFORMIN HYDROCHLORIDE\SITAGLIPTIN PHOSPHATE
     Indication: Diabetes mellitus
     Dosage: DOSE DESCRIPTION : 50/500MG TWICE A DAY?DAILY DOSE : 2 DOSAGE FORM?CONCENTRATION: 50/500 MILLIGRAM
     Route: 048
     Dates: start: 202011
  2. JANUMET [Suspect]
     Active Substance: METFORMIN HYDROCHLORIDE\SITAGLIPTIN PHOSPHATE
     Indication: Diabetes mellitus
     Dosage: DOSE DESCRIPTION : 50/500MG ONCE DAILY?DAILY DOSE : 1 DOSAGE FORM
     Route: 048
  3. JANUMET [Suspect]
     Active Substance: METFORMIN HYDROCHLORIDE\SITAGLIPTIN PHOSPHATE
     Indication: Type 2 diabetes mellitus
     Dosage: STRENGTH: 50/1000 MG, TWICE DAILY
     Route: 048
     Dates: start: 202501
  4. LISINOPRIL [Concomitant]
     Active Substance: LISINOPRIL
  5. CARVEDILOL [Concomitant]
     Active Substance: CARVEDILOL
  6. DOXAZOSIN [Concomitant]
     Active Substance: DOXAZOSIN MESYLATE
  7. CLONIDINE [Concomitant]
     Active Substance: CLONIDINE

REACTIONS (9)
  - Ill-defined disorder [Unknown]
  - Diarrhoea [Not Recovered/Not Resolved]
  - Incorrect dose administered [Unknown]
  - Blood pressure abnormal [Unknown]
  - Renal disorder [Unknown]
  - Headache [Not Recovered/Not Resolved]
  - Product dose omission issue [Unknown]
  - Incorrect dose administered [Unknown]
  - Product use issue [Unknown]

NARRATIVE: CASE EVENT DATE: 20200101
